FAERS Safety Report 9819498 (Version 2)
Quarter: 2014Q1

REPORT INFORMATION
  Report Type: Spontaneous
  Country: US (occurrence: US)
  Receive Date: 20140115
  Receipt Date: 20140304
  Transmission Date: 20141002
  Serious: No
  Sender: FDA-Public Use
  Company Number: US-009507513-1401USA005361

PATIENT
  Age: 57 Year
  Sex: Female
  Weight: 68.27 kg

DRUGS (7)
  1. VICTRELIS [Suspect]
     Indication: HEPATITIS C
     Dosage: 800 MG, TID
     Route: 048
     Dates: start: 20131129
  2. PEGASYS [Suspect]
     Dosage: QW
     Dates: start: 20131025
  3. RIBAPAK [Suspect]
     Dosage: 600 MG IN THE EVENING
     Dates: start: 20131025
  4. RIBAPAK [Suspect]
     Dosage: 400 MG IN THE MORNING
     Dates: start: 20131025
  5. BYSTOLIC [Concomitant]
  6. VITAMIN B12 RATIOPHARM [Concomitant]
     Dosage: UNK
  7. VITAMINS (UNSPECIFIED) [Concomitant]
     Dosage: UNK

REACTIONS (15)
  - Crying [Not Recovered/Not Resolved]
  - Feeling abnormal [Not Recovered/Not Resolved]
  - Feeling hot [Not Recovered/Not Resolved]
  - Injection site erythema [Not Recovered/Not Resolved]
  - Injection site bruising [Not Recovered/Not Resolved]
  - White blood cell count decreased [Not Recovered/Not Resolved]
  - Pain [Not Recovered/Not Resolved]
  - Peripheral coldness [Not Recovered/Not Resolved]
  - Cough [Not Recovered/Not Resolved]
  - Haemoglobin decreased [Not Recovered/Not Resolved]
  - Anaemia [Not Recovered/Not Resolved]
  - Platelet count decreased [Not Recovered/Not Resolved]
  - Asthenia [Not Recovered/Not Resolved]
  - Blood test abnormal [Not Recovered/Not Resolved]
  - Affect lability [Not Recovered/Not Resolved]
